FAERS Safety Report 6633059-1 (Version None)
Quarter: 2010Q1

REPORT INFORMATION
  Report Type: 
  Country: None (occurrence: None)
  Receive Date: 20100312
  Receipt Date: 20100304
  Transmission Date: 20100710
  Serious: Yes (Other)
  Sender: FDA-Public Use
  Company Number: CA-ROCHE-630935

PATIENT
  Sex: Male

DRUGS (11)
  1. PEG-INTERFERON ALFA 2A (RO 25-8310) [Suspect]
     Indication: HEPATITIS C
     Route: 058
     Dates: start: 20090422, end: 20091015
  2. RIBAVIRIN [Suspect]
     Indication: HEPATITIS C
     Dosage: 600 MG QAM AND 600 MG QPM
     Route: 048
     Dates: start: 20090422, end: 20091015
  3. SEROQUEL [Suspect]
     Indication: ANXIETY
     Route: 065
  4. CELEXA [Suspect]
     Indication: ANXIETY
     Route: 065
  5. GABAPENTIN [Suspect]
     Indication: ANXIETY
     Route: 065
  6. DIOVAN [Concomitant]
     Indication: HYPERTENSION
  7. ADVAIR DISKUS 100/50 [Concomitant]
     Indication: ASTHMA
  8. VENTOLIN [Concomitant]
     Indication: ASTHMA
  9. VALIUM [Concomitant]
  10. MULTI-VITAMIN [Concomitant]
  11. REMERON [Concomitant]
     Indication: ANXIETY
     Dates: start: 20090101

REACTIONS (9)
  - ABNORMAL DREAMS [None]
  - ANXIETY [None]
  - ASTHENIA [None]
  - CHILLS [None]
  - DIARRHOEA [None]
  - EYE MOVEMENT DISORDER [None]
  - GAIT DISTURBANCE [None]
  - HOT FLUSH [None]
  - MUSCLE TWITCHING [None]
